FAERS Safety Report 7031525-0 (Version None)
Quarter: 2010Q4

REPORT INFORMATION
  Report Type: 
  Country: None (occurrence: None)
  Receive Date: 20101006
  Receipt Date: 20101001
  Transmission Date: 20110411
  Serious: Yes (Death, Life-Threatening, Hospitalization)
  Sender: FDA-Public Use
  Company Number: ES-MERCK-1010ESP00003

PATIENT
  Age: 42 Year
  Sex: Male

DRUGS (5)
  1. RALTEGRAVIR [Suspect]
     Indication: HIV INFECTION
     Route: 065
     Dates: start: 20070701
  2. RALTEGRAVIR [Suspect]
     Indication: SALVAGE THERAPY
     Route: 065
     Dates: start: 20070701
  3. TENOFOVIR DISOPROXIL FUMARATE [Concomitant]
     Indication: HIV INFECTION
     Route: 065
     Dates: start: 20070701
  4. DARUNAVIR [Concomitant]
     Indication: HIV INFECTION
     Route: 065
     Dates: start: 20070701
  5. RITONAVIR [Concomitant]
     Indication: HIV INFECTION
     Route: 065
     Dates: start: 20070701

REACTIONS (3)
  - RESPIRATORY DISTRESS [None]
  - UNDERDOSE [None]
  - VIROLOGIC FAILURE [None]
